FAERS Safety Report 7625882-1 (Version None)
Quarter: 2011Q3

REPORT INFORMATION
  Report Type: 
  Country: None (occurrence: None)
  Receive Date: 20110713
  Receipt Date: 20110703
  Transmission Date: 20111222
  Serious: Yes (Death, Hospitalization, Other)
  Sender: FDA-Public Use
  Company Number: 2011SP025857

PATIENT
  Age: 40 Year
  Sex: Female

DRUGS (5)
  1. LAMOTRIGINE [Suspect]
     Indication: MAJOR DEPRESSION
  2. QUETIAPINE FUMARATE [Suspect]
     Indication: MAJOR DEPRESSION
  3. ALPRAZOLAM [Concomitant]
  4. VENLAFAXINE [Suspect]
     Indication: MAJOR DEPRESSION
  5. REMERON [Suspect]
     Indication: MAJOR DEPRESSION

REACTIONS (20)
  - HAEMOGLOBIN DECREASED [None]
  - MULTI-ORGAN DISORDER [None]
  - PRODUCTIVE COUGH [None]
  - CARDIAC ARREST [None]
  - ENTEROCOCCUS TEST POSITIVE [None]
  - BLOOD LACTIC ACID INCREASED [None]
  - CHILLS [None]
  - AGRANULOCYTOSIS [None]
  - CELLULITIS [None]
  - PHARYNGITIS [None]
  - ORAL CANDIDIASIS [None]
  - CONVULSION [None]
  - LUNG NEOPLASM [None]
  - SEPTIC SHOCK [None]
  - FEBRILE NEUTROPENIA [None]
  - WHITE BLOOD CELL COUNT DECREASED [None]
  - UNRESPONSIVE TO STIMULI [None]
  - ASPERGILLUS TEST POSITIVE [None]
  - HYPOKALAEMIA [None]
  - GENERAL PHYSICAL HEALTH DETERIORATION [None]
